FAERS Safety Report 18058438 (Version 1)
Quarter: 2020Q3

REPORT INFORMATION
  Report Type: Spontaneous
  Country: US (occurrence: US)
  Receive Date: 20200722
  Receipt Date: 20200722
  Transmission Date: 20201103
  Serious: Yes (Death)
  Sender: FDA-Public Use
  Company Number: None

PATIENT
  Age: 81 Year
  Sex: Male
  Weight: 92.4 kg

DRUGS (5)
  1. COMBIVENT [Concomitant]
     Active Substance: ALBUTEROL SULFATE\IPRATROPIUM BROMIDE
     Dates: start: 20200714, end: 20200715
  2. AZITHROMYCIN 500 MG IV [Concomitant]
     Dates: start: 20200713, end: 20200713
  3. CEFTRIAXONE 1 GM IV [Concomitant]
     Dates: start: 20200713, end: 20200713
  4. REMDESIVIR. [Suspect]
     Active Substance: REMDESIVIR
     Indication: COVID-19
     Route: 040
     Dates: start: 20200713, end: 20200715
  5. DEXAMETHASONE 6 MG [Concomitant]
     Dates: start: 20200713, end: 20200715

REACTIONS (5)
  - Acute respiratory failure [None]
  - Hypotension [None]
  - Hypoxia [None]
  - Mental status changes [None]
  - Oxygen saturation decreased [None]
